FAERS Safety Report 14610281 (Version 5)
Quarter: 2018Q2

REPORT INFORMATION
  Report Type: Spontaneous
  Country: AU (occurrence: AU)
  Receive Date: 20180307
  Receipt Date: 20180418
  Transmission Date: 20180711
  Serious: Yes (Hospitalization, Other)
  Sender: FDA-Public Use
  Company Number: AU-PFIZER INC-2018087720

PATIENT
  Age: 2 Year
  Sex: Female
  Weight: 8 kg

DRUGS (4)
  1. PANADOL [Concomitant]
     Active Substance: ACETAMINOPHEN
     Dosage: UNK
  2. GENOTROPIN [Suspect]
     Active Substance: SOMATROPIN
     Dosage: 0.4 MG, CYCLIC (6 DAYS/WEEK (6.5MG/M2/WEEK)
     Route: 058
  3. NUROFEN [Concomitant]
     Active Substance: IBUPROFEN
     Dosage: UNK
  4. GENOTROPIN [Suspect]
     Active Substance: SOMATROPIN
     Indication: GROWTH HORMONE DEFICIENCY
     Dosage: 0.4 MG, DAILY(7.5 MG/M2/WEEK)
     Route: 058
     Dates: start: 20180206

REACTIONS (4)
  - Oedema peripheral [Recovered/Resolved]
  - Rash [Recovered/Resolved]
  - Peripheral swelling [Recovered/Resolved]
  - Viral upper respiratory tract infection [Recovered/Resolved]
